FAERS Safety Report 20912807 (Version 2)
Quarter: 2022Q3

REPORT INFORMATION
  Report Type: Spontaneous
  Country: US (occurrence: US)
  Receive Date: 20220603
  Receipt Date: 20220804
  Transmission Date: 20221026
  Serious: Yes (Other)
  Sender: FDA-Public Use
  Company Number: US-ELI_LILLY_AND_COMPANY-US202205009470

PATIENT
  Sex: Male

DRUGS (1)
  1. BEBTELOVIMAB [Suspect]
     Active Substance: BEBTELOVIMAB
     Indication: COVID-19
     Dosage: UNK, UNKNOWN
     Route: 065
     Dates: start: 20220520

REACTIONS (6)
  - Atrial flutter [Unknown]
  - Atrial fibrillation [Unknown]
  - Dyspnoea [Unknown]
  - Dizziness [Unknown]
  - Palpitations [Unknown]
  - Fatigue [Unknown]

NARRATIVE: CASE EVENT DATE: 20220520
